FAERS Safety Report 5157342-4 (Version None)
Quarter: 2006Q4

REPORT INFORMATION
  Report Type: 
  Country: None (occurrence: None)
  Receive Date: 20061127
  Receipt Date: 20061106
  Transmission Date: 20070319
  Serious: Yes (Hospitalization)
  Sender: FDA-Public Use
  Company Number: JP-NOVOPROD-258430

PATIENT
  Age: 52 Year
  Sex: Female
  Weight: 47 kg

DRUGS (2)
  1. NOVOLIN 70/30 [Suspect]
     Indication: DIABETES MELLITUS
     Dosage: 41 IU, QD
     Route: 058
     Dates: start: 20050601, end: 20061107
  2. INNOLET 30R CHU [Suspect]
     Indication: DIABETES MELLITUS
     Dosage: 18 IU, QD
     Route: 058
     Dates: start: 20050501, end: 20050601

REACTIONS (1)
  - ANTI-INSULIN ANTIBODY [None]
